APPROVED DRUG PRODUCT: DESMOPRESSIN ACETATE (NEEDS NO REFRIGERATION)
Active Ingredient: DESMOPRESSIN ACETATE
Strength: 0.01MG/SPRAY
Dosage Form/Route: SPRAY, METERED;NASAL
Application: A078271 | Product #001
Applicant: SUN PHARMACEUTICAL INDUSTRIES LTD
Approved: Dec 23, 2013 | RLD: No | RS: No | Type: DISCN